FAERS Safety Report 18786070 (Version 2)
Quarter: 2021Q1

REPORT INFORMATION
  Report Type: Spontaneous
  Country: US (occurrence: US)
  Receive Date: 20210125
  Receipt Date: 20210326
  Transmission Date: 20210419
  Serious: Yes (Death)
  Sender: FDA-Public Use
  Company Number: US-ASTRAZENECA-2021A012031

PATIENT
  Age: 58 Year
  Sex: Female

DRUGS (2)
  1. FASENRA [Suspect]
     Active Substance: BENRALIZUMAB
     Indication: ASTHMA
     Route: 058
     Dates: start: 20200313
  2. FASENRA [Suspect]
     Active Substance: BENRALIZUMAB
     Indication: ASTHMA
     Dosage: INCREASE FREQUENCY TO EVERY 4 WEEKS
     Route: 058
     Dates: start: 20200710

REACTIONS (3)
  - Inappropriate schedule of product administration [Unknown]
  - COVID-19 [Fatal]
  - Drug ineffective [Unknown]
